FAERS Safety Report 24148182 (Version 3)
Quarter: 2024Q3

REPORT INFORMATION
  Report Type: Report from Study
  Country: JP (occurrence: JP)
  Receive Date: 20240729
  Receipt Date: 20240912
  Transmission Date: 20241017
  Serious: Yes (Other)
  Sender: PFIZER
  Company Number: JP-ONO-2024JP011156

PATIENT
  Age: 66 Year
  Sex: Female
  Weight: 57.5 kg

DRUGS (9)
  1. BRAFTOVI [Suspect]
     Active Substance: ENCORAFENIB
     Indication: Colon cancer
     Dosage: 300 MG, EVERYDAY
     Route: 048
     Dates: start: 20230111, end: 20230118
  2. BRAFTOVI [Suspect]
     Active Substance: ENCORAFENIB
     Dosage: 225 MG, EVERYDAY
     Route: 048
     Dates: start: 20230125, end: 20230307
  3. BRAFTOVI [Suspect]
     Active Substance: ENCORAFENIB
     Dosage: 150 MG, EVERYDAY
     Route: 048
     Dates: start: 20230308, end: 20230404
  4. BRAFTOVI [Suspect]
     Active Substance: ENCORAFENIB
     Dosage: 75 MG, EVERYDAY
     Route: 048
     Dates: start: 20230405, end: 20230516
  5. BRAFTOVI [Suspect]
     Active Substance: ENCORAFENIB
     Dosage: 150 MG, EVERYDAY
     Route: 048
     Dates: start: 20230517, end: 20230711
  6. BRAFTOVI [Suspect]
     Active Substance: ENCORAFENIB
     Dosage: 225 MG, EVERYDAY
     Route: 048
     Dates: start: 20230712, end: 20230808
  7. BRAFTOVI [Suspect]
     Active Substance: ENCORAFENIB
     Dosage: 300 MG, EVERYDAY
     Route: 048
     Dates: start: 20230809, end: 20231211
  8. MEKTOVI [Suspect]
     Active Substance: BINIMETINIB
     Indication: Colon cancer
     Dosage: 60 MG, EVERYDAY
     Route: 048
     Dates: start: 20231004, end: 20231212
  9. CETUXIMAB [Concomitant]
     Active Substance: CETUXIMAB
     Indication: Colon cancer
     Dosage: 500 MG/M2
     Route: 065
     Dates: start: 20230111, end: 20231129

REACTIONS (4)
  - Prinzmetal angina [Recovered/Resolved]
  - Nausea [Recovered/Resolved]
  - Nausea [Recovered/Resolved]
  - Underdose [Unknown]

NARRATIVE: CASE EVENT DATE: 20230119
